FAERS Safety Report 8103481-5 (Version None)
Quarter: 2012Q1

REPORT INFORMATION
  Report Type: 
  Country: None (occurrence: None)
  Receive Date: 20120201
  Receipt Date: 20120125
  Transmission Date: 20120608
  Serious: Yes (Death)
  Sender: FDA-Public Use
  Company Number: PHEH2012US002158

PATIENT
  Age: 89 Year
  Sex: Female

DRUGS (4)
  1. CORTISONE ACETATE [Concomitant]
  2. CRESTOR [Concomitant]
  3. VALTURNA [Suspect]
  4. LOSARTAN POTASSIUM [Concomitant]

REACTIONS (1)
  - BLADDER CANCER [None]
